FAERS Safety Report 9759094 (Version 1)
Quarter: 2013Q4

REPORT INFORMATION
  Report Type: Spontaneous
  Country: US (occurrence: None)
  Receive Date: 20131216
  Receipt Date: 20131216
  Transmission Date: 20140711
  Serious: Yes (Other)
  Sender: FDA-Public Use
  Company Number: 163-21880-12110896 (0)

PATIENT
  Age: 78 Year
  Sex: Male

DRUGS (1)
  1. REVLIMID (LENALIDOMIDE) (CAPSULES) [Suspect]
     Indication: MANTLE CELL LYMPHOMA
     Dosage: 25 MG, 21 IN 28 D, PO

REACTIONS (3)
  - Hypersensitivity [None]
  - Rash maculo-papular [None]
  - Dyspnoea [None]
